FAERS Safety Report 10142847 (Version 1)
Quarter: 2014Q2

REPORT INFORMATION
  Report Type: Spontaneous
  Country: FR (occurrence: FR)
  Receive Date: 20140430
  Receipt Date: 20140430
  Transmission Date: 20141212
  Serious: Yes (Hospitalization)
  Sender: FDA-Public Use
  Company Number: FR-ASTRAZENECA-2014SE28315

PATIENT
  Age: 33 Year
  Sex: Male

DRUGS (9)
  1. ENTOCORT [Suspect]
     Route: 048
     Dates: end: 20140401
  2. VFEND [Suspect]
     Route: 065
     Dates: start: 201401, end: 20140325
  3. NEORAL [Suspect]
     Route: 065
     Dates: start: 201401, end: 20140328
  4. FANSIDAR [Suspect]
     Route: 065
     Dates: start: 201401
  5. ZELITREX [Suspect]
     Route: 048
     Dates: start: 201401
  6. DELURSAN [Concomitant]
  7. GENTALLINE [Concomitant]
     Indication: DYSPEPSIA
  8. IMODIUM [Concomitant]
  9. CODEINE PHOSPHATE [Concomitant]

REACTIONS (6)
  - Hepatitis [Unknown]
  - Jaundice [Recovered/Resolved]
  - Leukopenia [Recovering/Resolving]
  - Blood disorder [Unknown]
  - Haemolytic anaemia [Unknown]
  - Platelet count decreased [Unknown]
